FAERS Safety Report 8034172-7 (Version None)
Quarter: 2012Q1

REPORT INFORMATION
  Report Type: 
  Country: None (occurrence: None)
  Receive Date: 20120110
  Receipt Date: 20120104
  Transmission Date: 20120608
  Serious: Yes (Hospitalization)
  Sender: FDA-Public Use
  Company Number: US-ABBOTT-11P-163-0731407-00

PATIENT
  Sex: Female
  Weight: 76.272 kg

DRUGS (6)
  1. ADVAIR DISKUS 100/50 [Concomitant]
     Indication: EMPHYSEMA
  2. GABAPENTIN [Concomitant]
     Indication: NEUROMA
  3. HUMIRA [Suspect]
     Indication: RHEUMATOID ARTHRITIS
     Route: 058
     Dates: start: 20100101
  4. ARAVA [Concomitant]
     Indication: RHEUMATOID ARTHRITIS
  5. ADVAIR DISKUS 100/50 [Concomitant]
     Indication: CHRONIC OBSTRUCTIVE PULMONARY DISEASE
  6. BYSTOLIC [Concomitant]
     Indication: HYPERTENSION

REACTIONS (5)
  - PLEURISY [None]
  - LUNG NEOPLASM [None]
  - LARYNGEAL STENOSIS [None]
  - RHEUMATOID LUNG [None]
  - PAINFUL RESPIRATION [None]
